FAERS Safety Report 9844043 (Version 1)
Quarter: 2014Q1

REPORT INFORMATION
  Report Type: Spontaneous
  Country: US (occurrence: US)
  Receive Date: 20140126
  Receipt Date: 20140126
  Transmission Date: 20141002
  Serious: No
  Sender: FDA-Public Use
  Company Number: US-009507513-1401USA010834

PATIENT
  Sex: 0

DRUGS (1)
  1. NUVARING [Suspect]
     Dosage: ONE RING FOR 3 WEEKS ON AND ONE WEEK OFF
     Route: 067
     Dates: start: 2009

REACTIONS (4)
  - Poor quality drug administered [Unknown]
  - Product physical issue [Unknown]
  - Product quality issue [Unknown]
  - No adverse event [Unknown]
